FAERS Safety Report 6905690-7 (Version None)
Quarter: 2010Q3

REPORT INFORMATION
  Report Type: 
  Country: None (occurrence: None)
  Receive Date: 20100708
  Receipt Date: 20090417
  Transmission Date: 20110219
  Serious: Yes (Other)
  Sender: FDA-Public Use
  Company Number: 2009202595

PATIENT
  Sex: Female
  Weight: 40.8 kg

DRUGS (3)
  1. CHANTIX [Suspect]
     Indication: SMOKING CESSATION THERAPY
     Dosage: 0.5 MG, 1X/DAY
     Dates: start: 20090416
  2. FLEXERIL [Concomitant]
  3. TRAZODONE HCL [Concomitant]

REACTIONS (1)
  - SUICIDAL IDEATION [None]
